FAERS Safety Report 9920088 (Version 9)
Quarter: 2016Q4

REPORT INFORMATION
  Report Type: Report from Study
  Country: US (occurrence: US)
  Receive Date: 20140224
  Receipt Date: 20161101
  Transmission Date: 20170207
  Serious: Yes (Disabling, Other)
  Sender: FDA-Public Use
  Company Number: US-SA-2014SA012520

PATIENT
  Age: 50 Year
  Sex: Male

DRUGS (6)
  1. AUBAGIO [Suspect]
     Active Substance: TERIFLUNOMIDE
     Indication: MULTIPLE SCLEROSIS
     Route: 048
  2. AUBAGIO [Suspect]
     Active Substance: TERIFLUNOMIDE
     Indication: MULTIPLE SCLEROSIS
     Route: 048
     Dates: start: 20131217, end: 20140211
  3. OXYCODONE [Concomitant]
     Active Substance: OXYCODONE
     Indication: BACK PAIN
     Dates: start: 2014
  4. OXYCODONE [Concomitant]
     Active Substance: OXYCODONE
     Indication: PAIN IN EXTREMITY
     Dates: start: 2014
  5. AUBAGIO [Suspect]
     Active Substance: TERIFLUNOMIDE
     Indication: MULTIPLE SCLEROSIS
     Route: 048
     Dates: end: 20150124
  6. VITAMIN B12 [Concomitant]
     Active Substance: CYANOCOBALAMIN
     Dosage: TWICE A MONTH: FREQUENCY

REACTIONS (21)
  - Kidney infection [Unknown]
  - Fall [Unknown]
  - Auditory disorder [Unknown]
  - Pain in extremity [Unknown]
  - Peripheral swelling [Unknown]
  - Musculoskeletal stiffness [Unknown]
  - Back pain [Unknown]
  - Walking aid user [Unknown]
  - Fungal infection [Not Recovered/Not Resolved]
  - Asthenia [Unknown]
  - Urine flow decreased [Unknown]
  - Joint range of motion decreased [Unknown]
  - Vitamin B1 decreased [Not Recovered/Not Resolved]
  - Hypoaesthesia [Not Recovered/Not Resolved]
  - Paraesthesia [Not Recovered/Not Resolved]
  - Visual impairment [Unknown]
  - Renal pain [Unknown]
  - Renal disorder [Unknown]
  - Depression [Recovering/Resolving]
  - Memory impairment [Not Recovered/Not Resolved]
  - Intervertebral disc protrusion [Unknown]

NARRATIVE: CASE EVENT DATE: 2016
